FAERS Safety Report 15385636 (Version 1)
Quarter: 2018Q3

REPORT INFORMATION
  Report Type: Report from Study
  Country: BE (occurrence: BE)
  Receive Date: 20180914
  Receipt Date: 20180914
  Transmission Date: 20181010
  Serious: Yes (Hospitalization)
  Sender: FDA-Public Use
  Company Number: BE-ASTRAZENECA-2018SF15469

PATIENT
  Age: 15276 Day

DRUGS (1)
  1. LYNPARZA [Suspect]
     Active Substance: OLAPARIB
     Indication: OVARIAN CANCER
     Route: 048

REACTIONS (1)
  - General physical health deterioration [Recovering/Resolving]

NARRATIVE: CASE EVENT DATE: 20180906
